FAERS Safety Report 12865956 (Version 1)
Quarter: 2016Q4

REPORT INFORMATION
  Report Type: Spontaneous
  Country: JP (occurrence: JP)
  Receive Date: 20161020
  Receipt Date: 20161020
  Transmission Date: 20170207
  Serious: Yes (Death, Disabling)
  Sender: FDA-Public Use
  Company Number: JP-JNJFOC-20161017223

PATIENT
  Age: 92 Year
  Sex: Male

DRUGS (3)
  1. TRAMAL [Suspect]
     Active Substance: TRAMADOL
     Indication: CANCER PAIN
     Route: 048
  2. TRAMAL [Suspect]
     Active Substance: TRAMADOL
     Indication: CANCER PAIN
     Route: 048
  3. TRAMAL [Suspect]
     Active Substance: TRAMADOL
     Indication: CANCER PAIN
     Route: 048

REACTIONS (2)
  - Hallucination [Unknown]
  - Neoplasm malignant [Fatal]
